FAERS Safety Report 16466409 (Version 2)
Quarter: 2019Q3

REPORT INFORMATION
  Report Type: Spontaneous
  Country: US (occurrence: US)
  Receive Date: 20190622
  Receipt Date: 20190701
  Transmission Date: 20191004
  Serious: No
  Sender: FDA-Public Use
  Company Number: US-JNJFOC-20190621510

PATIENT
  Sex: Male
  Weight: 63.56 kg

DRUGS (1)
  1. MENS ROGAINE EXTRA STRENGTH [Suspect]
     Active Substance: MINOXIDIL
     Indication: ALOPECIA
     Dosage: A CAP FULL TWICE A DAY.
     Route: 061

REACTIONS (2)
  - Overdose [Unknown]
  - Drug hypersensitivity [Recovered/Resolved]
